FAERS Safety Report 6636329-6 (Version None)
Quarter: 2010Q1

REPORT INFORMATION
  Report Type: 
  Country: None (occurrence: None)
  Receive Date: 20100316
  Receipt Date: 20100310
  Transmission Date: 20100710
  Serious: Yes (Other)
  Sender: FDA-Public Use
  Company Number: AU-NAPPMUNDI-GBR-2010-0006255

PATIENT
  Age: 38 Year
  Sex: Female

DRUGS (13)
  1. MORPHINE SULFATE [Suspect]
     Indication: ANALGESIC THERAPY
     Dosage: 500 MG, DAILY
     Route: 048
  2. MORPHINE SULFATE [Suspect]
     Dosage: 730 MG, DAILY
     Route: 048
  3. MORPHINE SULFATE [Suspect]
     Dosage: 210 MG, DAILY
     Route: 058
  4. OXYCODONE HCL [Suspect]
  5. CODEINE SULFATE [Concomitant]
  6. PROCHLORPERAZINE [Concomitant]
     Indication: ANTIEMETIC SUPPORTIVE CARE
  7. METOCLOPRAMIDE [Concomitant]
     Indication: ANTIEMETIC SUPPORTIVE CARE
  8. INDOMETHACIN [Concomitant]
     Indication: ANALGESIC INTERVENTION SUPPORTIVE THERAPY
  9. PIROXICAM [Concomitant]
     Indication: ANALGESIC INTERVENTION SUPPORTIVE THERAPY
  10. PARACETAMOL [Concomitant]
     Indication: ANALGESIC INTERVENTION SUPPORTIVE THERAPY
  11. PHENYTOIN [Concomitant]
     Indication: THERAPEUTIC AGENT TOXICITY
  12. CARBAMAZEPINE [Concomitant]
     Indication: THERAPEUTIC AGENT TOXICITY
  13. VALPROATE SODIUM [Concomitant]
     Indication: THERAPEUTIC AGENT TOXICITY

REACTIONS (1)
  - MYOCLONUS [None]
